FAERS Safety Report 5285486-5 (Version None)
Quarter: 2007Q1

REPORT INFORMATION
  Report Type: 
  Country: None (occurrence: None)
  Receive Date: 20070328
  Receipt Date: 20070319
  Transmission Date: 20070707
  Serious: Yes (Hospitalization)
  Sender: FDA-Public Use
  Company Number: 232096K07USA

PATIENT
  Sex: Female

DRUGS (1)
  1. REBIF [Suspect]
     Indication: MULTIPLE SCLEROSIS

REACTIONS (5)
  - ARTHRALGIA [None]
  - BACK PAIN [None]
  - BLOOD GLUCOSE INCREASED [None]
  - HEADACHE [None]
  - MEMORY IMPAIRMENT [None]
